FAERS Safety Report 10410694 (Version 1)
Quarter: 2014Q3

REPORT INFORMATION
  Report Type: Spontaneous
  Country: IN (occurrence: IN)
  Receive Date: 20140826
  Receipt Date: 20140826
  Transmission Date: 20150326
  Serious: Yes (Other)
  Sender: FDA-Public Use
  Company Number: PHHY2014IN101960

PATIENT
  Age: 24 Year
  Sex: Female
  Weight: 56 kg

DRUGS (10)
  1. REMIFENTANIL [Suspect]
     Active Substance: REMIFENTANIL
  2. ADENOSINE. [Suspect]
     Active Substance: ADENOSINE
  3. RINGER^S SOLUTION [Concomitant]
     Active Substance: RINGER^S SOLUTION
  4. DIGOXIN. [Suspect]
     Active Substance: DIGOXIN
     Indication: PERIPARTUM CARDIOMYOPATHY
  5. REMIFENTANIL [Suspect]
     Active Substance: REMIFENTANIL
     Route: 042
  6. METOPROLOL [Suspect]
     Active Substance: METOPROLOL
  7. DILTIAZEM [Suspect]
     Active Substance: DILTIAZEM
  8. THIOPENTAL [Suspect]
     Active Substance: THIOPENTAL
     Dosage: 100 MG, UNK
  9. ENALAPRIL [Suspect]
     Active Substance: ENALAPRIL
     Indication: PERIPARTUM CARDIOMYOPATHY
  10. SUXAMETHONIUM [Suspect]
     Active Substance: SUCCINYLCHOLINE
     Dosage: 100 MG, UNK

REACTIONS (4)
  - Drug ineffective [Unknown]
  - Heart rate increased [Unknown]
  - Hypotension [Unknown]
  - Maternal exposure during pregnancy [Unknown]
